FAERS Safety Report 18423206 (Version 1)
Quarter: 2020Q4

REPORT INFORMATION
  Report Type: Other
  Country: FR (occurrence: FR)
  Receive Date: 20201024
  Receipt Date: 20201024
  Transmission Date: 20210114
  Serious: Yes (Other)
  Sender: FDA-Public Use
  Company Number: FR-APOTEX-2020AP020378

PATIENT
  Age: 54 Year
  Sex: Female

DRUGS (3)
  1. PAROXETINE. [Suspect]
     Active Substance: PAROXETINE
     Indication: ANXIETY
     Dosage: 20 MG, QD
     Route: 048
     Dates: start: 20200911, end: 20200912
  2. THERALENE [Concomitant]
     Active Substance: TRIMEPRAZINE
     Indication: PRODUCT USED FOR UNKNOWN INDICATION
     Dosage: UNK
     Route: 065
  3. XANAX [Interacting]
     Active Substance: ALPRAZOLAM
     Indication: ANXIETY
     Dosage: UNK, (UNSPECIFIED)
     Route: 048
     Dates: start: 20200909

REACTIONS (2)
  - Dysuria [Recovered/Resolved]
  - Drug interaction [Unknown]

NARRATIVE: CASE EVENT DATE: 20200913
